FAERS Safety Report 11833079 (Version 1)
Quarter: 2015Q4

REPORT INFORMATION
  Report Type: Spontaneous
  Country: JP (occurrence: JP)
  Receive Date: 20151214
  Receipt Date: 20151214
  Transmission Date: 20160305
  Serious: Yes (Hospitalization, Other)
  Sender: FDA-Public Use
  Company Number: JP-VERNALIS THERAPEUTICS, INC.-2015VRN00062

PATIENT
  Age: 64 Year
  Sex: Male

DRUGS (3)
  1. WARFARIN [Suspect]
     Active Substance: WARFARIN
     Indication: ATRIAL FIBRILLATION
  2. ASPIRIN. [Concomitant]
     Active Substance: ASPIRIN
     Indication: ATRIAL FIBRILLATION
  3. AMOXICILLIN CLAVULANATE [Suspect]
     Active Substance: AMOXICILLIN\CLAVULANIC ACID
     Indication: CELLULITIS
     Dosage: UNK

REACTIONS (8)
  - Haematoma [None]
  - Coagulopathy [Recovered/Resolved]
  - Oropharyngeal pain [None]
  - Pharyngitis [None]
  - Drug interaction [Recovered/Resolved]
  - Productive cough [None]
  - Purpura [None]
  - Dysphonia [None]
